FAERS Safety Report 9196284 (Version 5)
Quarter: 2013Q2

REPORT INFORMATION
  Report Type: Spontaneous
  Country: JP (occurrence: JP)
  Receive Date: 20130328
  Receipt Date: 20130517
  Transmission Date: 20140414
  Serious: Yes (Life-Threatening, Hospitalization, Other)
  Sender: FDA-Public Use
  Company Number: JP-JNJFOC-20130316321

PATIENT
  Age: 7 Year
  Sex: Male
  Weight: 25 kg

DRUGS (18)
  1. TOPINA [Suspect]
     Indication: ENCEPHALITIS
     Route: 048
     Dates: start: 20120804, end: 20120808
  2. TOPINA [Suspect]
     Indication: ENCEPHALITIS
     Route: 048
     Dates: start: 20120802, end: 20120803
  3. RAVONAL [Suspect]
     Indication: PRODUCT USED FOR UNKNOWN INDICATION
     Route: 065
     Dates: start: 20120817, end: 20120827
  4. RAVONAL [Suspect]
     Indication: PRODUCT USED FOR UNKNOWN INDICATION
     Route: 065
     Dates: start: 20120804, end: 20120804
  5. RAVONAL [Suspect]
     Indication: PRODUCT USED FOR UNKNOWN INDICATION
     Route: 065
     Dates: start: 20120801, end: 20120801
  6. RAVONAL [Suspect]
     Indication: PRODUCT USED FOR UNKNOWN INDICATION
     Route: 065
     Dates: start: 20120807, end: 20120816
  7. RAVONAL [Suspect]
     Indication: PRODUCT USED FOR UNKNOWN INDICATION
     Route: 065
     Dates: start: 20120802, end: 20120803
  8. RAVONAL [Suspect]
     Indication: PRODUCT USED FOR UNKNOWN INDICATION
     Route: 065
     Dates: start: 20120805, end: 20120805
  9. RAVONAL [Suspect]
     Indication: PRODUCT USED FOR UNKNOWN INDICATION
     Route: 065
     Dates: start: 20120806, end: 20120806
  10. KEPPRA (LEVETIRACETAM) [Suspect]
     Indication: PRODUCT USED FOR UNKNOWN INDICATION
     Route: 048
     Dates: start: 20120802, end: 20120803
  11. KEPPRA (LEVETIRACETAM) [Suspect]
     Indication: PRODUCT USED FOR UNKNOWN INDICATION
     Route: 048
     Dates: start: 20120804, end: 20120813
  12. PREDONINE [Concomitant]
     Route: 065
     Dates: start: 20120806, end: 20120817
  13. LEVETIRACETAM [Concomitant]
     Route: 065
  14. PHENOBARBITAL [Concomitant]
     Route: 066
  15. SOL-MELCORT [Concomitant]
     Route: 065
     Dates: start: 20120803, end: 20120809
  16. VENILON [Concomitant]
     Route: 065
     Dates: start: 20120803, end: 20120816
  17. PHENOBARBITAL SODIUM [Concomitant]
     Route: 065
     Dates: start: 20120803, end: 20120813
  18. SEFIROM [Concomitant]
     Route: 065
     Dates: start: 20120801, end: 20120911

REACTIONS (3)
  - Renal failure [Recovered/Resolved]
  - Ileus paralytic [Recovered/Resolved]
  - Sepsis [Recovered/Resolved]
